FAERS Safety Report 8617067 (Version 4)
Quarter: 2013Q4

REPORT INFORMATION
  Report Type: Spontaneous
  Country: US (occurrence: US)
  Receive Date: 20120615
  Receipt Date: 20131205
  Transmission Date: 20140711
  Serious: Yes (Other)
  Sender: FDA-Public Use
  Company Number: US-PFIZER INC-2012140494

PATIENT
  Age: 33 Year
  Sex: Male
  Weight: 122 kg

DRUGS (19)
  1. LYRICA [Suspect]
     Indication: FIBROMYALGIA
     Dosage: 75 MG, DAILY
     Dates: start: 201102
  2. LYRICA [Suspect]
     Indication: NEURALGIA
     Dosage: 75 MG, 2X/DAY
  3. LYRICA [Suspect]
     Dosage: 75 MG, 3X/DAY
  4. LYRICA [Suspect]
     Dosage: UNK, SIX TIMES A DAY
  5. LYRICA [Suspect]
     Dosage: 425 MG, 1X/DAY
  6. LYRICA [Suspect]
     Dosage: UNK
  7. LYRICA [Suspect]
     Dosage: UNK (2 CAPSULE 75MG IN MORNING, 2CAPSULE 75MG IN AFTERNOON AND 3CAPSULE OF 75MG AT NIGHT), 3X/DAY
  8. GABAPENTIN [Suspect]
     Indication: PAIN
     Dosage: 100 MG, 3X/DAY
     Dates: start: 201011
  9. GABAPENTIN [Suspect]
     Indication: FIBROMYALGIA
     Dosage: 300 MG, 3X/DAY
  10. GABAPENTIN [Suspect]
     Dosage: 400 MG, 3X/DAY
  11. GABAPENTIN [Suspect]
     Dosage: 600 MG, 3X/DAY
     Dates: end: 201102
  12. MIRTAZAPINE [Suspect]
     Indication: DEPRESSION
     Dosage: 30 MG, 1X/DAY
  13. MIRTAZAPINE [Suspect]
     Dosage: 15 MG, 1X/DAY
  14. CORTISONE [Suspect]
     Indication: BACK PAIN
     Dosage: UNK
  15. CYMBALTA [Suspect]
     Indication: FIBROMYALGIA
     Dosage: UNK
  16. SAVELLA [Suspect]
     Indication: FIBROMYALGIA
     Dosage: UNK
  17. CLONAZEPAM [Concomitant]
     Indication: ANXIETY
     Dosage: 1 MG, 3X/DAY
  18. CLONAZEPAM [Concomitant]
     Indication: PANIC ATTACK
  19. TRAMADOL [Concomitant]
     Indication: BACK PAIN
     Dosage: 50 MG, 4X/DAY

REACTIONS (17)
  - Dehydration [Unknown]
  - Fibromyalgia [Not Recovered/Not Resolved]
  - Memory impairment [Unknown]
  - Depression [Recovering/Resolving]
  - Blood pressure abnormal [Unknown]
  - Irritable bowel syndrome [Unknown]
  - Tremor [Unknown]
  - Somnolence [Not Recovered/Not Resolved]
  - Food intolerance [Unknown]
  - Feeling abnormal [Unknown]
  - Malaise [Unknown]
  - Fatigue [Not Recovered/Not Resolved]
  - Pain [Recovering/Resolving]
  - Weight fluctuation [Unknown]
  - Drug ineffective [Unknown]
  - Withdrawal syndrome [Unknown]
  - Weight increased [Unknown]
